FAERS Safety Report 5322949-8 (Version None)
Quarter: 2007Q2

REPORT INFORMATION
  Report Type: 
  Country: None (occurrence: None)
  Receive Date: 20070511
  Receipt Date: 20070510
  Transmission Date: 20071010
  Serious: Yes (Hospitalization)
  Sender: FDA-Public Use
  Company Number: FR-MERCK-0605FRA00023

PATIENT
  Age: 28 Year
  Sex: Male

DRUGS (3)
  1. SINGULAIR [Suspect]
     Indication: ASTHMA
     Route: 048
     Dates: start: 20040901, end: 20060301
  2. BUDESONIDE AND FORMOTEROL FUMARATE [Concomitant]
     Indication: ASTHMA
  3. ALBUTEROL SULFATE [Concomitant]
     Indication: ASTHMA

REACTIONS (2)
  - ALLERGIC GRANULOMATOUS ANGIITIS [None]
  - ASTHMA [None]
